FAERS Safety Report 11895054 (Version 3)
Quarter: 2016Q1

REPORT INFORMATION
  Report Type: Spontaneous
  Country: US (occurrence: US)
  Receive Date: 20160107
  Receipt Date: 20160203
  Transmission Date: 20160526
  Serious: Yes (Life-Threatening, Hospitalization, Other)
  Sender: FDA-Public Use
  Company Number: US-SA-2016SA000732

PATIENT
  Age: 54 Year
  Sex: Female

DRUGS (4)
  1. EPTIFIBATIDE. [Concomitant]
     Active Substance: EPTIFIBATIDE
     Dosage: EVERY MINUTE
  2. ASPIRIN. [Suspect]
     Active Substance: ASPIRIN
     Indication: VERTEBRAL ARTERY DISSECTION
     Route: 065
  3. CLOPIDOGREL BISULFATE. [Suspect]
     Active Substance: CLOPIDOGREL BISULFATE
     Indication: VERTEBRAL ARTERY DISSECTION
     Route: 065
  4. EPTIFIBATIDE. [Concomitant]
     Active Substance: EPTIFIBATIDE

REACTIONS (5)
  - Hemianopia homonymous [Unknown]
  - Mydriasis [Recovered/Resolved with Sequelae]
  - Depressed level of consciousness [Recovered/Resolved]
  - Brain herniation [Recovered/Resolved with Sequelae]
  - Cerebral haemorrhage [Recovered/Resolved]
